FAERS Safety Report 13269927 (Version 1)
Quarter: 2017Q1

REPORT INFORMATION
  Report Type: Report from Study
  Country: US (occurrence: US)
  Receive Date: 20170224
  Receipt Date: 20170224
  Transmission Date: 20170428
  Serious: Yes (Other)
  Sender: FDA-Public Use
  Company Number: PHHO2017US003750

PATIENT
  Age: 75 Year
  Sex: Female
  Weight: 84.8 kg

DRUGS (1)
  1. GSK1120212 [Suspect]
     Active Substance: TRAMETINIB
     Indication: NEOPLASM
     Dosage: 2 MG, QD
     Route: 048
     Dates: start: 20161013, end: 20161109

REACTIONS (3)
  - Alanine aminotransferase increased [Unknown]
  - Blood bilirubin increased [Unknown]
  - Aspartate aminotransferase increased [Unknown]

NARRATIVE: CASE EVENT DATE: 20161110
